FAERS Safety Report 5457912-X (Version None)
Quarter: 2007Q3

REPORT INFORMATION
  Report Type: 
  Country: None (occurrence: None)
  Receive Date: 20070918
  Receipt Date: 20070910
  Transmission Date: 20080115
  Serious: Yes (Other)
  Sender: FDA-Public Use
  Company Number: US-ABBOTT-07P-163-0416634-00

PATIENT
  Age: 39 Year
  Sex: Male

DRUGS (3)
  1. VICODIN [Suspect]
     Indication: DRUG USE FOR UNKNOWN INDICATION
     Route: 048
     Dates: start: 20070815, end: 20070820
  2. SENNA ALEXANDRINA EXTRACT [Suspect]
     Indication: DIARRHOEA
     Route: 048
     Dates: start: 20070816, end: 20070816
  3. EXCEDRIN [Concomitant]
     Indication: DRUG USE FOR UNKNOWN INDICATION
     Dates: start: 20070820

REACTIONS (1)
  - DIARRHOEA [None]
